FAERS Safety Report 5206679-9 (Version None)
Quarter: 2006Q4

REPORT INFORMATION
  Report Type: 
  Country: None (occurrence: None)
  Receive Date: 20061026
  Receipt Date: 20060922
  Transmission Date: 20070319
  Serious: Yes (Other)
  Sender: FDA-Public Use
  Company Number: 2006115954

PATIENT
  Age: 76 Year
  Sex: Male
  Weight: 117.9352 kg

DRUGS (7)
  1. LYRICA [Suspect]
     Indication: DIABETIC NEUROPATHY
     Dates: start: 20060919
  2. ULTRAM [Concomitant]
  3. AVANDIA [Concomitant]
  4. GLUCOTROL [Concomitant]
  5. LASIX [Concomitant]
  6. POTASSIUM ACETATE [Concomitant]
  7. SKELAXIN [Concomitant]

REACTIONS (4)
  - CONFUSIONAL STATE [None]
  - DIZZINESS [None]
  - GENERAL PHYSICAL HEALTH DETERIORATION [None]
  - LETHARGY [None]
